FAERS Safety Report 7543678-6 (Version None)
Quarter: 2011Q2

REPORT INFORMATION
  Report Type: 
  Country: None (occurrence: None)
  Receive Date: 20110613
  Receipt Date: 20030409
  Transmission Date: 20111010
  Serious: Yes (Hospitalization)
  Sender: FDA-Public Use
  Company Number: PHHO2003BE04825

PATIENT
  Age: 61 Year
  Sex: Female

DRUGS (6)
  1. PROPYL-THYRACIL [Concomitant]
  2. TRISEQUENS [Concomitant]
  3. ELTHYRONE [Concomitant]
  4. SANDIMMUNE [Suspect]
     Indication: ORAL LICHEN PLANUS
     Dates: start: 20010425
  5. DIFLUCAN [Concomitant]
  6. ROCALTROL [Concomitant]

REACTIONS (1)
  - BASEDOW'S DISEASE [None]
